FAERS Safety Report 19846623 (Version 1)
Quarter: 2021Q3

REPORT INFORMATION
  Report Type: Spontaneous
  Country: DE (occurrence: DE)
  Receive Date: 20210917
  Receipt Date: 20210917
  Transmission Date: 20211014
  Serious: Yes (Hospitalization)
  Sender: FDA-Public Use
  Company Number: DE-TEVA-2021-DE-1951965

PATIENT
  Age: 79 Year
  Sex: Male
  Weight: 108 kg

DRUGS (7)
  1. AMLODIPIN [Concomitant]
     Active Substance: AMLODIPINE BESYLATE
     Dosage: 10 MILLIGRAM DAILY; 0?0?1?0
     Route: 048
  2. ATORVASTATIN [Concomitant]
     Active Substance: ATORVASTATIN
     Dosage: 20 MILLIGRAM DAILY; 0?0?1?0
     Route: 048
  3. ESOMEPRAZOL [Concomitant]
     Active Substance: ESOMEPRAZOLE
     Dosage: 40 MILLIGRAM DAILY; 1?0?0?0
     Route: 048
  4. BISOPROLOL/HYDROCHLOROTHIAZID [Suspect]
     Active Substance: BISOPROLOL FUMARATE\HYDROCHLOROTHIAZIDE
     Dosage: 1 DOSAGE FORMS DAILY; 5|12.5 MG, 0?0?1?0
     Route: 048
  5. ALLOPURINOL. [Concomitant]
     Active Substance: ALLOPURINOL
     Dosage: 300 MILLIGRAM DAILY; 0?1?0?0
     Route: 048
  6. CANDESARTAN/HYDROCHLOROTHIAZID [Suspect]
     Active Substance: CANDESARTAN CILEXETIL\HYDROCHLOROTHIAZIDE
     Dosage: 2 DOSAGE FORMS DAILY; 16|12.5 MG, 2?0?0?0
     Route: 048
  7. ACETYLSALICYLSAURE [Concomitant]
     Active Substance: ASPIRIN
     Dosage: 100 MILLIGRAM DAILY; 0?1?0?0
     Route: 048

REACTIONS (9)
  - Fatigue [Recovering/Resolving]
  - Weight decreased [Recovering/Resolving]
  - Initial insomnia [Recovering/Resolving]
  - Night sweats [Recovering/Resolving]
  - Product prescribing error [Unknown]
  - General physical health deterioration [Recovering/Resolving]
  - Abnormal faeces [Recovering/Resolving]
  - Asthenia [Recovering/Resolving]
  - Constipation [Recovering/Resolving]
